FAERS Safety Report 17253311 (Version 1)
Quarter: 2019Q4

REPORT INFORMATION
  Report Type: Spontaneous
  Country: US (occurrence: US)
  Receive Date: 20191216
  Receipt Date: 20191216
  Transmission Date: 20200122
  Serious: No
  Sender: FDA-Public Use
  Company Number: None

PATIENT
  Age: 65 Year
  Sex: Female

DRUGS (1)
  1. LEDIP/SOFOSB TAB 90-400MG TAB(2X14) [Suspect]
     Active Substance: LEDIPASVIR\SOFOSBUVIR
     Dosage: ?          OTHER DOSE:90/400MG;?
     Route: 048
     Dates: start: 201911

REACTIONS (2)
  - Fatigue [None]
  - Arthralgia [None]

NARRATIVE: CASE EVENT DATE: 20191216
